FAERS Safety Report 7866093-4 (Version None)
Quarter: 2011Q4

REPORT INFORMATION
  Report Type: 
  Country: None (occurrence: None)
  Receive Date: 20111028
  Receipt Date: 20110421
  Transmission Date: 20120403
  Serious: No
  Sender: FDA-Public Use
  Company Number: US-GLAXOSMITHKLINE-A0924007A

PATIENT
  Age: 55 Year
  Sex: Male

DRUGS (2)
  1. NO CONCURRENT MEDICATION [Concomitant]
  2. ADVAIR DISKUS 100/50 [Suspect]
     Indication: COUGH
     Route: 055
     Dates: start: 20110414, end: 20110414

REACTIONS (5)
  - CHILLS [None]
  - HEADACHE [None]
  - PYREXIA [None]
  - OROPHARYNGEAL PAIN [None]
  - ERYTHEMA [None]
